FAERS Safety Report 6980882-X (Version None)
Quarter: 2010Q3

REPORT INFORMATION
  Report Type: 
  Country: None (occurrence: None)
  Receive Date: 20100914
  Receipt Date: 20100903
  Transmission Date: 20110219
  Serious: Yes (Other)
  Sender: FDA-Public Use
  Company Number: A0788398A

PATIENT
  Sex: Female

DRUGS (1)
  1. AVANDIA [Suspect]
     Indication: DIABETES MELLITUS
     Dosage: 8MG TWICE PER DAY
     Route: 048
     Dates: end: 20050101

REACTIONS (5)
  - CARDIAC FAILURE [None]
  - HEART RATE IRREGULAR [None]
  - HYPERTENSION [None]
  - MACULAR OEDEMA [None]
  - MULTIPLE FRACTURES [None]
